FAERS Safety Report 9006106 (Version 2)
Quarter: 2013Q1

REPORT INFORMATION
  Report Type: Spontaneous
  Country: JP (occurrence: JP)
  Receive Date: 20130109
  Receipt Date: 20130117
  Transmission Date: 20140127
  Serious: Yes (Other)
  Sender: FDA-Public Use
  Company Number: JP-BRISTOL-MYERS SQUIBB COMPANY-17200981

PATIENT
  Age: 61 Year
  Sex: Male
  Weight: 62 kg

DRUGS (6)
  1. ABILIFY TABS [Suspect]
     Indication: SCHIZOPHRENIA
     Dosage: TAB,06NOV12TO20NOV12:INCREASED TO 18MG
     Route: 048
     Dates: start: 20121030, end: 20121120
  2. BROTIZOLAM [Suspect]
     Indication: INSOMNIA
     Dosage: TABS
     Route: 048
     Dates: start: 20121030, end: 20121202
  3. FLUNITRAZEPAM [Suspect]
     Dosage: TABS
     Dates: start: 20121030, end: 20121126
  4. CHLORPROMAZINE HYDROCHLORIDE [Suspect]
     Indication: RESTLESSNESS
     Dosage: TABS, 03NOV2012
     Dates: start: 20121103, end: 20121126
  5. LEVOPROMAZIN [Suspect]
     Indication: RESTLESSNESS
     Dosage: TAB
     Dates: start: 20121103, end: 20121103
  6. BENZALIN [Concomitant]
     Dosage: TABS.
     Dates: start: 20121128, end: 20121129

REACTIONS (4)
  - Blood creatine phosphokinase increased [Recovered/Resolved]
  - Blood lactate dehydrogenase increased [Recovered/Resolved]
  - Hepatic function abnormal [Recovered/Resolved]
  - Renal impairment [Recovering/Resolving]
